FAERS Safety Report 15934812 (Version 3)
Quarter: 2021Q3

REPORT INFORMATION
  Report Type: Spontaneous
  Country: US (occurrence: US)
  Receive Date: 20190207
  Receipt Date: 20210723
  Transmission Date: 20211014
  Serious: Yes (Other)
  Sender: FDA-Public Use
  Company Number: US-BAUSCH-BL-2018-005619

PATIENT
  Age: 55 Year
  Sex: Male

DRUGS (9)
  1. CUPRIMINE [Suspect]
     Active Substance: PENICILLAMINE
     Indication: NEPHROLITHIASIS
     Route: 048
     Dates: start: 1979, end: 20180226
  2. LIPITOR [Concomitant]
     Active Substance: ATORVASTATIN CALCIUM
     Indication: PRODUCT USED FOR UNKNOWN INDICATION
  3. CUPRIMINE [Suspect]
     Active Substance: PENICILLAMINE
     Dosage: 250MG ? TWO TABLETS
     Route: 048
     Dates: end: 202102
  4. AMLODIPINE [Concomitant]
     Active Substance: AMLODIPINE BESYLATE
     Indication: PRODUCT USED FOR UNKNOWN INDICATION
  5. ASPIRIN. [Concomitant]
     Active Substance: ASPIRIN
     Indication: PRODUCT USED FOR UNKNOWN INDICATION
  6. METFORMIN [Concomitant]
     Active Substance: METFORMIN HYDROCHLORIDE
     Indication: PRODUCT USED FOR UNKNOWN INDICATION
  7. CUPRIMINE [Suspect]
     Active Substance: PENICILLAMINE
     Indication: CYSTINE URINE
     Dosage: RE?STARTED AFTER GETTING OUT OF MEDICATION
     Route: 048
     Dates: end: 20190126
  8. CUPRIMINE [Suspect]
     Active Substance: PENICILLAMINE
     Dosage: RE?STARTED AFTER GETTING OUT OF MEDICATION
     Route: 048
     Dates: end: 20200114
  9. ATENOLOL. [Concomitant]
     Active Substance: ATENOLOL
     Indication: PRODUCT USED FOR UNKNOWN INDICATION

REACTIONS (5)
  - Malaise [Not Recovered/Not Resolved]
  - Nephrolithiasis [Unknown]
  - Inability to afford medication [Unknown]
  - Therapy interrupted [Unknown]
  - Insurance issue [Unknown]

NARRATIVE: CASE EVENT DATE: 20180227
